FAERS Safety Report 7990692-2 (Version None)
Quarter: 2011Q4

REPORT INFORMATION
  Report Type: 
  Country: None (occurrence: None)
  Receive Date: 20111219
  Receipt Date: 20111205
  Transmission Date: 20120403
  Serious: No
  Sender: FDA-Public Use
  Company Number: US-ROXANE LABORATORIES, INC.-2011-RO-01766RO

PATIENT
  Sex: Male

DRUGS (7)
  1. REGLAN [Concomitant]
  2. ZANTAC [Concomitant]
  3. VALIUM [Concomitant]
  4. PRILOSEC [Concomitant]
  5. DEMEROL [Concomitant]
     Indication: PAIN
     Dosage: 300 MG
  6. BUTORPHANOL TARATRATE [Suspect]
     Indication: PAIN
     Route: 045
  7. SEROQUEL [Concomitant]

REACTIONS (5)
  - PRODUCT DEPOSIT [None]
  - NASAL CONGESTION [None]
  - PRODUCT DROPPER ISSUE [None]
  - INCREASED UPPER AIRWAY SECRETION [None]
  - COUGH [None]
